FAERS Safety Report 9571026 (Version 1)
Quarter: 2013Q4

REPORT INFORMATION
  Report Type: Spontaneous
  Country: US (occurrence: US)
  Receive Date: 20131001
  Receipt Date: 20131001
  Transmission Date: 20140711
  Serious: No
  Sender: FDA-Public Use
  Company Number: US-US-EMD SERONO, INC.-7239488

PATIENT
  Sex: Female

DRUGS (6)
  1. REBIF [Suspect]
     Indication: RELAPSING-REMITTING MULTIPLE SCLEROSIS
  2. LEVOTHYROXINE [Concomitant]
     Indication: PRODUCT USED FOR UNKNOWN INDICATION
  3. SPRINTEC [Concomitant]
     Indication: PRODUCT USED FOR UNKNOWN INDICATION
  4. ALEVE                              /00256202/ [Concomitant]
     Indication: PRODUCT USED FOR UNKNOWN INDICATION
  5. MOTRIN [Concomitant]
     Indication: PRODUCT USED FOR UNKNOWN INDICATION
  6. TYLENOL                            /00020001/ [Concomitant]
     Indication: PRODUCT USED FOR UNKNOWN INDICATION

REACTIONS (3)
  - Central nervous system lesion [Unknown]
  - Drug resistance [Unknown]
  - Drug ineffective [Unknown]
